FAERS Safety Report 8380387-8 (Version None)
Quarter: 2012Q2

REPORT INFORMATION
  Report Type: 
  Country: None (occurrence: None)
  Receive Date: 20120523
  Receipt Date: 20120514
  Transmission Date: 20120825
  Serious: Yes (Other)
  Sender: FDA-Public Use
  Company Number: GB-TEVA-338270ISR

PATIENT
  Age: 6 Decade
  Sex: Male

DRUGS (3)
  1. VITAMIN B12 ANALOGUES [Concomitant]
     Dosage: 1MG EVERY 12WKS
     Route: 030
  2. PREDNISOLONE [Suspect]
     Dosage: 60MG DAILY
     Route: 048
  3. VITAMIN B12 ANALOGUES [Concomitant]
     Indication: VITAMIN B12 DEFICIENCY
     Dosage: 6MG OVER 2WKS, FOLLOWED BY 1MG EVERY 12WKS
     Route: 030

REACTIONS (3)
  - ATAXIA [None]
  - NEUROPATHY PERIPHERAL [None]
  - CONDITION AGGRAVATED [None]
